FAERS Safety Report 7178265-5 (Version None)
Quarter: 2010Q4

REPORT INFORMATION
  Report Type: 
  Country: None (occurrence: None)
  Receive Date: 20101220
  Receipt Date: 20101213
  Transmission Date: 20110411
  Serious: Yes (Hospitalization, Other)
  Sender: FDA-Public Use
  Company Number: JP-PFIZER INC-2010138293

PATIENT
  Age: 76 Year
  Sex: Female
  Weight: 31 kg

DRUGS (14)
  1. LYRICA [Suspect]
     Indication: CERVICOBRACHIAL SYNDROME
     Dosage: 75 MG, 1X/DAY
     Route: 048
     Dates: start: 20101028, end: 20101104
  2. LYRICA [Suspect]
     Indication: BACK PAIN
  3. LYRICA [Suspect]
     Indication: MUSCULOSKELETAL STIFFNESS
  4. IMIDAPRIL HYDROCHLORIDE [Suspect]
     Dosage: 5 MG, 1X/DAY
     Route: 048
  5. PLETAL [Suspect]
     Dosage: 50 MG, 2X/DAY
     Route: 048
  6. LOXONIN [Concomitant]
     Indication: CERVICOBRACHIAL SYNDROME
     Dosage: UNK
     Dates: end: 20101028
  7. ONE-ALPHA [Concomitant]
     Dosage: 0.5 UG, 1X/DAY
     Route: 048
  8. MYONAL [Concomitant]
     Dosage: 50 MG, 2X/DAY
     Route: 048
  9. MAG-LAX [Concomitant]
     Dosage: 330 MG, 2X/DAY
     Route: 048
  10. ASCOMP [Concomitant]
     Dosage: 0.4 MG, 1X/DAY
     Route: 048
  11. AZULENE [Concomitant]
     Dosage: 1 MG, 1X/DAY
     Route: 048
  12. GLUTAMINE [Concomitant]
     Dosage: 1 MG, 1X/DAY
     Route: 048
  13. EPADEL [Concomitant]
     Dosage: 900 MG, 1X/DAY
     Route: 048
  14. PURSENNID [Concomitant]
     Dosage: 36 MG, 1X/DAY
     Route: 048

REACTIONS (1)
  - LOSS OF CONSCIOUSNESS [None]
